FAERS Safety Report 10413991 (Version 1)
Quarter: 2014Q3

REPORT INFORMATION
  Report Type: Spontaneous
  Country: GB (occurrence: None)
  Receive Date: 20140825
  Receipt Date: 20140825
  Transmission Date: 20150326
  Serious: Yes (Hospitalization)
  Sender: FDA-Public Use
  Company Number: GB-ALKEM-000681

PATIENT
  Age: 78 Year
  Sex: Female

DRUGS (15)
  1. TRIMETHOPRIM. [Suspect]
     Active Substance: TRIMETHOPRIM
     Indication: URINARY TRACT INFECTION
     Route: 048
     Dates: end: 20140627
  2. CITALOPRAM (CITALOPRAM) [Concomitant]
     Active Substance: CITALOPRAM HYDROBROMIDE
  3. BISOPROLOL (BISOPROLOL) [Concomitant]
     Active Substance: BISOPROLOL
  4. FUROSEMIDE (FUROSEMIDE) [Suspect]
     Active Substance: FUROSEMIDE
     Indication: PRODUCT USED FOR UNKNOWN INDICATION
  5. PARACETAMOL (PARACETAMOL) [Concomitant]
     Active Substance: ACETAMINOPHEN
  6. LANSOPRAZOLE (LANSOPRAZOLE) [Concomitant]
     Active Substance: LANSOPRAZOLE
  7. MOVELAT (MOVELAT) [Concomitant]
  8. NICORANDIL (NICORANDIL) [Concomitant]
     Active Substance: NICORANDIL
  9. FOSTAIR (FOSTAIR) [Concomitant]
  10. SIMVASTATIN (SIMVASTATIN) [Concomitant]
     Active Substance: SIMVASTATIN
  11. CEPHALEXIN. [Suspect]
     Active Substance: CEPHALEXIN
     Indication: URINARY TRACT INFECTION
     Route: 048
     Dates: start: 20140619
  12. ASPIRIN (ASPIRIN) [Concomitant]
     Active Substance: ASPIRIN
  13. NYSTATIN (NYSTATIN) [Concomitant]
     Active Substance: NYSTATIN
  14. GLYCERYL TRINITRATE (GLYCERYL TRINITRATE) [Concomitant]
  15. ZOPICLONE (ZOPICLONE) [Concomitant]
     Active Substance: ZOPICLONE

REACTIONS (3)
  - Renal failure acute [None]
  - Treatment failure [None]
  - Prescribed underdose [None]
